FAERS Safety Report 21937230 (Version 1)
Quarter: 2023Q1

REPORT INFORMATION
  Report Type: Spontaneous
  Country: US (occurrence: US)
  Receive Date: 20230201
  Receipt Date: 20230201
  Transmission Date: 20230418
  Serious: No
  Sender: FDA-Public Use
  Company Number: US-EPIZYME, INC-2022USEPIZYME0811

PATIENT

DRUGS (5)
  1. TAZVERIK [Suspect]
     Active Substance: TAZEMETOSTAT HYDROBROMIDE
     Indication: Malignant connective tissue neoplasm
     Dosage: 800 MG, BID
     Route: 048
     Dates: start: 20220905
  2. BACLOFEN [Concomitant]
     Active Substance: BACLOFEN
     Indication: Product used for unknown indication
  3. ACETAMINOPHEN\HYDROCODONE [Concomitant]
     Active Substance: ACETAMINOPHEN\HYDROCODONE
     Indication: Product used for unknown indication
  4. OXYCODONE [Concomitant]
     Active Substance: OXYCODONE
     Indication: Product used for unknown indication
  5. TYLENOL WITH CODEIN [CODEINE PHOSPHATE;PARACETAMOL] [Concomitant]
     Indication: Product used for unknown indication

REACTIONS (1)
  - Product dose omission issue [Unknown]
